FAERS Safety Report 4264810-6 (Version None)
Quarter: 2004Q1

REPORT INFORMATION
  Report Type: 
  Country: None (occurrence: None)
  Receive Date: 20040105
  Receipt Date: 20031223
  Transmission Date: 20041129
  Serious: Yes (Death, Life-Threatening, Hospitalization)
  Sender: FDA-Public Use
  Company Number: OXCD20030009

PATIENT
  Age: 56 Year
  Sex: Female

DRUGS (10)
  1. OXYCODONE HCL [Suspect]
     Dosage: PO
     Route: 048
     Dates: end: 20020101
  2. CLONAZEPAM [Suspect]
     Dosage: PO
     Route: 048
     Dates: end: 20020101
  3. VENLAFAXINE HCL [Suspect]
     Dosage: PO
     Route: 048
     Dates: end: 20020101
  4. MIRTAZAPINE [Suspect]
     Dosage: PO
     Route: 048
     Dates: end: 20020101
  5. ACYCLOVIR [Suspect]
     Dosage: PO
     Route: 048
     Dates: end: 20020101
  6. METHOCARBAMOL [Suspect]
     Dosage: PO
     Route: 048
     Dates: end: 20020101
  7. TOPIRMATE [Suspect]
     Dosage: PO
     Route: 048
     Dates: end: 20020101
  8. AMLODIPINE BESYLATE [Suspect]
     Dosage: PO
     Route: 048
     Dates: end: 20020101
  9. ATORVASTATIN [Suspect]
     Dosage: PO
     Route: 048
     Dates: end: 20020101
  10. NITROGLYCERIN [Suspect]
     Dosage: PO
     Route: 048
     Dates: end: 20020101

REACTIONS (8)
  - ANOXIC ENCEPHALOPATHY [None]
  - BLOOD BICARBONATE INCREASED [None]
  - BLOOD CREATINE PHOSPHOKINASE INCREASED [None]
  - COMA [None]
  - MULTIPLE DRUG OVERDOSE [None]
  - RESPIRATORY ARREST [None]
  - SUICIDE ATTEMPT [None]
  - TROPONIN INCREASED [None]
